FAERS Safety Report 8545178 (Version 2)
Quarter: 2012Q4

REPORT INFORMATION
  Report Type: 
  Country: JP (occurrence: JP)
  Receive Date: 20120503
  Receipt Date: 20121008
  Transmission Date: 20130627
  Serious: Yes (Death)
  Sender: FDA-Public Use
  Company Number: JP-ROCHE-1038000

PATIENT
  Age: 50 Year
  Sex: Male
  Weight: 43 kg

DRUGS (7)
  1. ACTEMRA [Suspect]
     Indication: CACHEXIA
     Route: 041
     Dates: start: 20110811, end: 20110908
  2. NAVELBINE [Concomitant]
     Indication: LUNG SQUAMOUS CELL CARCINOMA STAGE IV
     Dosage: Dosage is uncertain.
     Route: 042
     Dates: start: 201106
  3. PREDONINE [Concomitant]
     Indication: CACHEXIA
     Route: 048
     Dates: start: 20110711
  4. LENDORMIN [Concomitant]
     Route: 048
     Dates: start: 20110819
  5. TAKEPRON [Concomitant]
     Route: 048
     Dates: start: 20110805
  6. NAIXAN [Concomitant]
     Indication: CACHEXIA
     Route: 048
     Dates: start: 20110711
  7. MEDICON [Concomitant]
     Route: 048
     Dates: start: 20110822

REACTIONS (3)
  - Squamous cell carcinoma of lung [Fatal]
  - Pyrexia [Recovered/Resolved]
  - Urticaria [Recovering/Resolving]
